FAERS Safety Report 14831565 (Version 1)
Quarter: 2018Q2

REPORT INFORMATION
  Report Type: Spontaneous
  Country: FR (occurrence: FR)
  Receive Date: 20180501
  Receipt Date: 20180501
  Transmission Date: 20180711
  Serious: Yes (Other)
  Sender: FDA-Public Use
  Company Number: FR-TEVA-2018-FR-886853

PATIENT
  Age: 75 Year
  Sex: Male
  Weight: 61 kg

DRUGS (4)
  1. INNOHEP [Concomitant]
     Active Substance: TINZAPARIN SODIUM
     Dosage: 1 UNKNOWN DAILY;
     Route: 058
  2. BEVACIZUMAB ((MAMMIFERE/HAMSTER/CELLULES CHO)) [Concomitant]
     Indication: BRONCHIAL CARCINOMA
  3. CLARITHROMYCIN. [Suspect]
     Active Substance: CLARITHROMYCIN
     Indication: BRONCHIAL CARCINOMA
     Route: 042
  4. PEMETREXED. [Suspect]
     Active Substance: PEMETREXED
     Indication: BRONCHIAL CARCINOMA
     Dosage: 700 MILLIGRAM DAILY;

REACTIONS (1)
  - Acute kidney injury [Not Recovered/Not Resolved]
